FAERS Safety Report 4376893-3 (Version None)
Quarter: 2004Q2

REPORT INFORMATION
  Report Type: 
  Country: None (occurrence: None)
  Receive Date: 20040608
  Receipt Date: 20030503
  Transmission Date: 20050107
  Serious: Yes (Other)
  Sender: FDA-Public Use
  Company Number: 200311487BCC

PATIENT
  Age: 65 Year
  Sex: Male
  Weight: 79.3795 kg

DRUGS (2)
  1. ALEVE [Suspect]
     Indication: POST PROCEDURAL PAIN
     Dosage: 440 MG, QD, ORAL
     Route: 048
     Dates: start: 20030409, end: 20030423
  2. ALEVE [Suspect]
     Dosage: 440 MG, QD, ORAL
     Route: 048
     Dates: start: 20030501

REACTIONS (1)
  - BLOOD URINE [None]
